FAERS Safety Report 5610599-5 (Version None)
Quarter: 2008Q1

REPORT INFORMATION
  Report Type: 
  Country: None (occurrence: None)
  Receive Date: 20080201
  Receipt Date: 20080118
  Transmission Date: 20080703
  Serious: Yes (Hospitalization)
  Sender: FDA-Public Use
  Company Number: SE-JNJFOC-20080107470

PATIENT
  Age: 26 Year
  Sex: Female

DRUGS (5)
  1. REMICADE [Suspect]
     Indication: RHEUMATOID ARTHRITIS
     Route: 042
  2. CITALOPRAM HYDROBROMIDE [Concomitant]
     Route: 048
  3. OMEPRAZOLE [Concomitant]
     Route: 048
  4. METHOTREXATE [Concomitant]
     Route: 048
  5. PREDNISOLONE [Concomitant]
     Route: 048

REACTIONS (8)
  - DIARRHOEA [None]
  - INFECTION IN AN IMMUNOCOMPROMISED HOST [None]
  - NAUSEA [None]
  - PNEUMONIA [None]
  - SINUSITIS [None]
  - URINARY TRACT INFECTION [None]
  - VOMITING [None]
  - WEIGHT DECREASED [None]
